FAERS Safety Report 5497410-0 (Version None)
Quarter: 2007Q4

REPORT INFORMATION
  Report Type: 
  Country: None (occurrence: None)
  Receive Date: 20071025
  Receipt Date: 20070503
  Transmission Date: 20080405
  Serious: No
  Sender: FDA-Public Use
  Company Number: US-BRISTOL-MYERS SQUIBB COMPANY-13768809

PATIENT
  Age: 72 Year
  Sex: Female
  Weight: 83 kg

DRUGS (4)
  1. METFORMIN HCL [Suspect]
     Indication: DIABETES MELLITUS
     Dosage: 2-3 X DAILY DEPENDING ON BLOOD GLUCOSE LEVELS
     Route: 048
     Dates: start: 20030101
  2. ATENOLOL [Concomitant]
  3. LISINOPRIL [Concomitant]
  4. CLONIDINE [Concomitant]

REACTIONS (2)
  - ANOREXIA [None]
  - WEIGHT DECREASED [None]
